FAERS Safety Report 17644645 (Version 4)
Quarter: 2020Q2

REPORT INFORMATION
  Report Type: Spontaneous
  Country: US (occurrence: US)
  Receive Date: 20200408
  Receipt Date: 20200504
  Transmission Date: 20200713
  Serious: Yes (Hospitalization, Other)
  Sender: FDA-Public Use
  Company Number: US-CELGENEUS-USA-20200400841

PATIENT
  Sex: Male

DRUGS (14)
  1. POMALYST [Suspect]
     Active Substance: POMALIDOMIDE
     Dosage: 3 MILLIGRAM
     Route: 048
     Dates: start: 201910
  2. POMALYST [Suspect]
     Active Substance: POMALIDOMIDE
     Dosage: 2 MILLIGRAM
     Route: 048
     Dates: start: 20200403
  3. REVLIMID [Suspect]
     Active Substance: LENALIDOMIDE
     Dosage: 25 MILLIGRAM
     Route: 048
     Dates: start: 201503
  4. REVLIMID [Suspect]
     Active Substance: LENALIDOMIDE
     Dosage: 10 - 25 MG
     Route: 048
     Dates: start: 201609
  5. REVLIMID [Suspect]
     Active Substance: LENALIDOMIDE
     Dosage: 25 MILLIGRAM
     Route: 048
     Dates: start: 20170109
  6. VELCADE [Concomitant]
     Active Substance: BORTEZOMIB
     Dosage: 40 MILLIGRAM
     Route: 058
     Dates: start: 20150317, end: 20150714
  7. VELCADE [Concomitant]
     Active Substance: BORTEZOMIB
     Dosage: 40 MILLIGRAM
     Route: 058
     Dates: start: 201905, end: 201909
  8. POMALYST [Suspect]
     Active Substance: POMALIDOMIDE
     Indication: PLASMA CELL MYELOMA
     Dosage: 4 MILLIGRAM
     Route: 048
     Dates: start: 201909
  9. VELCADE [Concomitant]
     Active Substance: BORTEZOMIB
     Indication: PLASMA CELL MYELOMA
     Dosage: 40 MILLIGRAM
     Route: 058
     Dates: start: 201406, end: 201411
  10. VELCADE [Concomitant]
     Active Substance: BORTEZOMIB
     Dosage: 40 MILLIGRAM
     Route: 058
     Dates: start: 20150721, end: 20151013
  11. VELCADE [Concomitant]
     Active Substance: BORTEZOMIB
     Dosage: 40 MILLIGRAM
     Route: 058
     Dates: start: 2019, end: 201912
  12. DARZALEX [Concomitant]
     Active Substance: DARATUMUMAB
     Indication: PRODUCT USED FOR UNKNOWN INDICATION
     Dosage: 16 MILLIGRAM/KILOGRAM
     Route: 065
     Dates: start: 20200116
  13. REVLIMID [Suspect]
     Active Substance: LENALIDOMIDE
     Indication: PLASMA CELL MYELOMA
     Dosage: 25 MILLIGRAM
     Route: 048
     Dates: start: 201406
  14. REVLIMID [Suspect]
     Active Substance: LENALIDOMIDE
     Dosage: 25 MILLIGRAM
     Route: 048
     Dates: start: 201906

REACTIONS (4)
  - Neutropenia [Unknown]
  - Plasma cell myeloma [Not Recovered/Not Resolved]
  - Mycobacterium avium complex infection [Unknown]
  - Therapeutic product effect decreased [Unknown]

NARRATIVE: CASE EVENT DATE: 2020
